FAERS Safety Report 14608431 (Version 3)
Quarter: 2019Q4

REPORT INFORMATION
  Report Type: Report from Study
  Country: US (occurrence: US)
  Receive Date: 20180307
  Receipt Date: 20191014
  Transmission Date: 20200122
  Serious: Yes (Hospitalization, Other)
  Sender: FDA-Public Use
  Company Number: US-TEVA-2018-US-866985

PATIENT
  Age: 64 Year

DRUGS (1)
  1. COPAXONE [Suspect]
     Active Substance: GLATIRAMER ACETATE
     Indication: MULTIPLE SCLEROSIS
     Route: 058
     Dates: start: 20180212

REACTIONS (14)
  - Lip blister [Recovered/Resolved]
  - Hyperhidrosis [Unknown]
  - Pyrexia [Unknown]
  - Hypotension [Unknown]
  - Oral mucosal blistering [Recovered/Resolved]
  - Systemic lupus erythematosus [Unknown]
  - Chills [Unknown]
  - Vaginal mucosal blistering [Recovered/Resolved]
  - Splenomegaly [Unknown]
  - Stomach mass [Unknown]
  - Lymphadenopathy [Unknown]
  - Haemoglobin decreased [Unknown]
  - Platelet count decreased [Unknown]
  - Hepatomegaly [Unknown]

NARRATIVE: CASE EVENT DATE: 201802
